FAERS Safety Report 8598377-9 (Version None)
Quarter: 2012Q3

REPORT INFORMATION
  Report Type: 
  Country: None (occurrence: None)
  Receive Date: 20120816
  Receipt Date: 20120814
  Transmission Date: 20120928
  Serious: No
  Sender: FDA-Public Use
  Company Number: US-PFIZER INC-2012199489

PATIENT
  Sex: Female

DRUGS (2)
  1. LYRICA [Concomitant]
  2. CHANTIX [Suspect]
     Indication: SMOKING CESSATION THERAPY

REACTIONS (3)
  - HEADACHE [None]
  - TOBACCO USER [None]
  - NAUSEA [None]
